FAERS Safety Report 5916777-X (Version None)
Quarter: 2008Q4

REPORT INFORMATION
  Report Type: 
  Country: None (occurrence: None)
  Receive Date: 20081009
  Receipt Date: 20081001
  Transmission Date: 20090506
  Serious: Yes (Other)
  Sender: FDA-Public Use
  Company Number: 2008SP020104

PATIENT
  Age: 52 Year
  Sex: Male

DRUGS (2)
  1. PEG-INTRON [Suspect]
     Indication: HEPATITIS C
     Dosage: SC
     Route: 058
     Dates: start: 20040101, end: 20040101
  2. REBETOL [Suspect]
     Indication: HEPATITIS C
     Dosage: PO
     Route: 048
     Dates: start: 20040101, end: 20040101

REACTIONS (5)
  - DRUG ABUSE [None]
  - FATIGUE [None]
  - INCREASED UPPER AIRWAY SECRETION [None]
  - INFLUENZA LIKE ILLNESS [None]
  - SKIN DISCOLOURATION [None]
